FAERS Safety Report 13353303 (Version 2)
Quarter: 2017Q1

REPORT INFORMATION
  Report Type: Spontaneous
  Country: US (occurrence: US)
  Receive Date: 20170321
  Receipt Date: 20170328
  Transmission Date: 20170429
  Serious: Yes (Other)
  Sender: FDA-Public Use
  Company Number: US-ASTRAZENECA-2017SE29080

PATIENT
  Age: 84 Year
  Sex: Female
  Weight: 62.8 kg

DRUGS (3)
  1. ARIMIDEX [Suspect]
     Active Substance: ANASTROZOLE
     Indication: INTRADUCTAL PROLIFERATIVE BREAST LESION
     Route: 048
     Dates: start: 201305
  2. FLAGYL [Suspect]
     Active Substance: METRONIDAZOLE\METRONIDAZOLE HYDROCHLORIDE
     Route: 065
  3. AROMASIN [Suspect]
     Active Substance: EXEMESTANE
     Route: 048

REACTIONS (3)
  - Arthralgia [Unknown]
  - Thyroid mass [Unknown]
  - Back pain [Unknown]
